FAERS Safety Report 7996948-1 (Version None)
Quarter: 2011Q4

REPORT INFORMATION
  Report Type: 
  Country: None (occurrence: None)
  Receive Date: 20111216
  Receipt Date: 20111205
  Transmission Date: 20120403
  Serious: Yes (Other)
  Sender: FDA-Public Use
  Company Number: 1000019124

PATIENT
  Age: 44 Year
  Sex: Female
  Weight: 100 kg

DRUGS (7)
  1. PENTATOP (CROMOGLICATE SODIUM) (CROMOGLICATE SODIUM) [Concomitant]
  2. ESCITALOPRAM OXALATE [Suspect]
     Indication: DEPRESSION
     Dosage: 20 MG, (20 MG, 1 IN 1 D),ORAL
     Route: 048
     Dates: start: 20050101
  3. TRAMADOL HCL [Concomitant]
  4. ESCITALOPRAM OXALATE [Suspect]
     Indication: DEPRESSION
     Dosage: 5 MG OR 2.5 MG, ORAL
     Route: 048
  5. L-THYROXIN (LEVOTHYROXINE SODIUM) (LEVOTHYROXINE SODIUM) [Concomitant]
  6. TELFAST (FEXOFENADINE) (FEXOFENADINE) [Concomitant]
  7. RANITIDIN (RANITIDINE HYDROCHLORIDE) (RANITIDINE HYDROCLORIDE) [Concomitant]

REACTIONS (15)
  - ANTI FACTOR X ANTIBODY POSITIVE [None]
  - ANTIPHOSPHOLIPID ANTIBODIES POSITIVE [None]
  - BLOOD IMMUNOGLOBULIN M INCREASED [None]
  - GAMMA-GLUTAMYLTRANSFERASE INCREASED [None]
  - BLOOD IMMUNOGLOBULIN G INCREASED [None]
  - AURICULAR PERICHONDRITIS [None]
  - ALANINE AMINOTRANSFERASE INCREASED [None]
  - PLASMIN INHIBITOR INCREASED [None]
  - PLASMINOGEN ACTIVATOR INHIBITOR DECREASED [None]
  - SYSTEMIC LUPUS ERYTHEMATOSUS [None]
  - VON WILLEBRAND'S FACTOR ANTIGEN DECREASED [None]
  - DRUG INEFFECTIVE [None]
  - URGE INCONTINENCE [None]
  - BLOOD URIC ACID INCREASED [None]
  - PARAESTHESIA [None]
